FAERS Safety Report 12421589 (Version 1)
Quarter: 2016Q2

REPORT INFORMATION
  Report Type: Spontaneous
  Country: US (occurrence: US)
  Receive Date: 20160531
  Receipt Date: 20160531
  Transmission Date: 20160815
  Serious: No
  Sender: FDA-Public Use
  Company Number: US-BAYER-2016-097760

PATIENT
  Age: 69 Year
  Sex: Female
  Weight: 95.24 kg

DRUGS (2)
  1. ALEVE PM [Suspect]
     Active Substance: DIPHENHYDRAMINE HYDROCHLORIDE\NAPROXEN SODIUM
     Indication: SLEEP DISORDER THERAPY
     Dosage: 1 DF, UNK
     Route: 048
     Dates: start: 20160518, end: 20160518
  2. ALEVE PM [Suspect]
     Active Substance: DIPHENHYDRAMINE HYDROCHLORIDE\NAPROXEN SODIUM
     Indication: SLEEP DISORDER THERAPY
     Dosage: TOOK A HALF DOSE OF ALEVE PM
     Route: 048
     Dates: start: 20160518, end: 20160518

REACTIONS (2)
  - Somnolence [None]
  - Product use issue [None]
